FAERS Safety Report 9720601 (Version 9)
Quarter: 2014Q4

REPORT INFORMATION
  Report Type: Report from Study
  Country: DE (occurrence: DE)
  Receive Date: 20131129
  Receipt Date: 20141125
  Transmission Date: 20150529
  Serious: Yes (Hospitalization)
  Sender: FDA-Public Use
  Company Number: PHHY2013DE136084

PATIENT
  Sex: Female
  Weight: 50 kg

DRUGS (6)
  1. CONCERTA [Suspect]
     Active Substance: METHYLPHENIDATE HYDROCHLORIDE
     Indication: ANXIETY DISORDER
     Dosage: 72 MG, DAY
     Route: 048
     Dates: start: 2006
  2. INNOHEP [Concomitant]
     Active Substance: TINZAPARIN SODIUM
     Indication: HYPERCOAGULATION
     Dosage: 20.000 IU, UNK
     Route: 058
     Dates: start: 20121229
  3. AMN107 [Suspect]
     Active Substance: NILOTINIB
     Indication: CHRONIC MYELOID LEUKAEMIA
     Dosage: 600 MG, DAY
     Route: 048
     Dates: start: 20120528, end: 20131118
  4. AMN107 [Suspect]
     Active Substance: NILOTINIB
     Route: 048
  5. TRAZODONE [Suspect]
     Active Substance: TRAZODONE HYDROCHLORIDE
     Indication: ANXIETY DISORDER
     Dosage: 200 MG, QD
     Route: 048
     Dates: start: 2007
  6. MARCUMAR [Concomitant]
     Active Substance: PHENPROCOUMON
     Indication: HYPERCOAGULATION
     Route: 058
     Dates: start: 2007, end: 20121228

REACTIONS (2)
  - Palpitations [Recovered/Resolved]
  - Electrocardiogram QT prolonged [Not Recovered/Not Resolved]

NARRATIVE: CASE EVENT DATE: 20131114
